FAERS Safety Report 10448427 (Version 1)
Quarter: 2014Q3

REPORT INFORMATION
  Report Type: Spontaneous
  Country: US (occurrence: US)
  Receive Date: 20140911
  Receipt Date: 20140911
  Transmission Date: 20150326
  Serious: Yes (Hospitalization, Other)
  Sender: FDA-Public Use
  Company Number: US-B.I. PHARMACEUTICALS,INC./RIDGEFIELD-2014-BI-42375BP

PATIENT
  Age: 69 Year
  Sex: Male

DRUGS (1)
  1. PRADAXA [Suspect]
     Active Substance: DABIGATRAN ETEXILATE MESYLATE
     Indication: ATRIAL FIBRILLATION
     Dosage: 300 MG
     Route: 048
     Dates: start: 20110314, end: 20140226

REACTIONS (5)
  - Large intestinal ulcer [Unknown]
  - Haemorrhagic anaemia [Unknown]
  - Lower gastrointestinal haemorrhage [Unknown]
  - Diverticulum [Unknown]
  - Oesophagitis [Unknown]

NARRATIVE: CASE EVENT DATE: 20140225
